FAERS Safety Report 5330902-3 (Version None)
Quarter: 2007Q2

REPORT INFORMATION
  Report Type: 
  Country: None (occurrence: None)
  Receive Date: 20070516
  Receipt Date: 20070504
  Transmission Date: 20071010
  Serious: Yes (Other)
  Sender: FDA-Public Use
  Company Number: TPA2007A00960

PATIENT
  Age: 6 Decade
  Sex: Female
  Weight: 113.3993 kg

DRUGS (1)
  1. ACTOPLUS MET [Suspect]
     Indication: DIABETES MELLITUS NON-INSULIN-DEPENDENT
     Dosage: PER ORAL
     Route: 048

REACTIONS (2)
  - FALL [None]
  - WRIST FRACTURE [None]
